FAERS Safety Report 17178183 (Version 1)
Quarter: 2019Q4

REPORT INFORMATION
  Report Type: Spontaneous
  Country: DE (occurrence: DE)
  Receive Date: 20191219
  Receipt Date: 20191219
  Transmission Date: 20200122
  Serious: Yes (Other)
  Sender: FDA-Public Use
  Company Number: DE-ROCHE-2498637

PATIENT
  Sex: Female

DRUGS (3)
  1. PEGASYS [Suspect]
     Active Substance: PEGINTERFERON ALFA-2A
     Indication: THROMBOCYTOPENIA
     Route: 065
  2. PEGASYS [Suspect]
     Active Substance: PEGINTERFERON ALFA-2A
     Indication: THROMBOCYTOSIS
     Route: 065
  3. PEGASYS [Suspect]
     Active Substance: PEGINTERFERON ALFA-2A
     Indication: PRIMARY MYELOFIBROSIS

REACTIONS (8)
  - Cystitis noninfective [Unknown]
  - Mucosal dryness [Unknown]
  - Tinea pedis [Unknown]
  - Intentional product use issue [Unknown]
  - Nausea [Unknown]
  - Off label use [Unknown]
  - Dry skin [Unknown]
  - Nephritis [Unknown]
